FAERS Safety Report 8621070 (Version 2)
Quarter: 2012Q4

REPORT INFORMATION
  Report Type: 
  Country: US (occurrence: US)
  Receive Date: 20120619
  Receipt Date: 20120829
  Transmission Date: 20130627
  Serious: Yes (Hospitalization, Other)
  Sender: FDA-Public Use
  Company Number: US-SANOFI-AVENTIS-2012SA041414

PATIENT
  Age: 68 Year
  Sex: Female
  Weight: 76.81 kg

DRUGS (9)
  1. LANTUS [Suspect]
     Indication: TYPE II DIABETES MELLITUS
     Dosage: Dose:12 unit(s)
     Route: 058
     Dates: end: 20120601
  2. SOLOSTAR [Suspect]
     Indication: TYPE II DIABETES MELLITUS
     Dates: start: 20120405, end: 20120601
  3. CARDIAC THERAPY [Concomitant]
  4. DIOVAN ^NOVARTIS^ [Concomitant]
     Indication: BLOOD PRESSURE ABNORMAL
     Dates: start: 2000
  5. METFORMIN [Concomitant]
     Indication: DIABETES
     Dates: start: 2000
  6. GLIPIZIDE [Concomitant]
     Indication: DIABETES
     Dates: start: 2000
  7. TRIAMTERENE AND HYDROCHLOROTHIAZID ^HARRIS^ [Concomitant]
     Indication: DIURETIC THERAPY
     Dates: start: 2000
  8. CRESTOR /UNK/ [Concomitant]
     Indication: BLOOD CHOLESTEROL ABNORMAL
     Dates: start: 2011
  9. LANTUS [Suspect]
     Indication: TYPE II DIABETES MELLITUS
     Dosage: Dose:5 unit(s)
     Route: 058
     Dates: start: 20120405

REACTIONS (7)
  - Pain in extremity [Recovered/Resolved]
  - Muscular weakness [Unknown]
  - Condition aggravated [Unknown]
  - Blood glucose increased [Unknown]
  - Joint swelling [Recovered/Resolved]
  - Arthralgia [Unknown]
  - Arthritis [Unknown]
